FAERS Safety Report 15450975 (Version 2)
Quarter: 2018Q4

REPORT INFORMATION
  Report Type: Report from Study
  Country: None (occurrence: US)
  Receive Date: 20181001
  Receipt Date: 20181009
  Transmission Date: 20190204
  Serious: No
  Sender: FDA-Public Use
  Company Number: US-ABBVIE-18S-163-2503304-00

PATIENT
  Age: 60 Year
  Sex: Male
  Weight: 75.82 kg

DRUGS (2)
  1. HYDRACHLOROTHIAZIDE [Concomitant]
     Indication: HYPERTENSION
  2. MARINOL [Suspect]
     Active Substance: DRONABINOL
     Indication: PAIN
     Route: 048
     Dates: start: 2017

REACTIONS (3)
  - Pain [Recovering/Resolving]
  - Incorrect dose administered [Unknown]
  - Road traffic accident [Recovered/Resolved]

NARRATIVE: CASE EVENT DATE: 20180905
